FAERS Safety Report 9310654 (Version 2)
Quarter: 2013Q3

REPORT INFORMATION
  Report Type: Spontaneous
  Country: US (occurrence: US)
  Receive Date: 20130527
  Receipt Date: 20130924
  Transmission Date: 20140515
  Serious: No
  Sender: FDA-Public Use
  Company Number: US-009507513-1305USA015093

PATIENT
  Age: 56 Year
  Sex: Female
  Weight: 102.4 kg

DRUGS (2)
  1. ZEGERID OTC CAPSULES [Suspect]
     Indication: GASTROOESOPHAGEAL REFLUX DISEASE
     Dosage: 40 MG, QD
     Route: 048
  2. ZEGERID OTC CAPSULES [Suspect]
     Indication: MEDICAL OBSERVATION

REACTIONS (5)
  - Chemical burn of skin [Unknown]
  - Pain in extremity [Unknown]
  - Erythema [Unknown]
  - Overdose [Unknown]
  - Product quality issue [Unknown]
